FAERS Safety Report 7611188-3 (Version None)
Quarter: 2011Q3

REPORT INFORMATION
  Report Type: 
  Country: None (occurrence: None)
  Receive Date: 20110707
  Receipt Date: 20110623
  Transmission Date: 20111222
  Serious: Yes (Death)
  Sender: FDA-Public Use
  Company Number: US-2011-10434

PATIENT
  Age: 21 Year
  Sex: Female

DRUGS (7)
  1. ANTIBIOTICS [Concomitant]
  2. FLUDARABINE PHOSPHATE [Suspect]
     Indication: STEM CELL TRANSPLANT
     Dosage: 40 MG/M2, DAILY DOSE
  3. GLOBULIN (IMMUNOGLOBULIN) [Concomitant]
  4. TACROLIMUS [Concomitant]
  5. METHOTREXATE [Concomitant]
  6. G-CSF (G-CSF) [Concomitant]
  7. BUSULFEX [Suspect]
     Indication: STEM CELL TRANSPLANT
     Dosage: DAILY, DOSE, INTRAVENOUS
     Route: 042

REACTIONS (2)
  - INFECTION [None]
  - ACUTE MYELOID LEUKAEMIA RECURRENT [None]
